FAERS Safety Report 17587207 (Version 1)
Quarter: 2020Q1

REPORT INFORMATION
  Report Type: Spontaneous
  Country: US (occurrence: US)
  Receive Date: 20200326
  Receipt Date: 20200326
  Transmission Date: 20200409
  Serious: Yes (Other)
  Sender: FDA-Public Use
  Company Number: ALC2020US002432

PATIENT

DRUGS (1)
  1. CYCLOPENTOLATE HCL 1% [Suspect]
     Active Substance: CYCLOPENTOLATE HYDROCHLORIDE
     Indication: PRODUCT USED FOR UNKNOWN INDICATION
     Route: 065

REACTIONS (4)
  - Low birth weight baby [Unknown]
  - Gastric residual increased [Unknown]
  - Bradycardia [Unknown]
  - Oxygen saturation decreased [Unknown]
